FAERS Safety Report 16138201 (Version 1)
Quarter: 2019Q1

REPORT INFORMATION
  Report Type: Spontaneous
  Country: FR (occurrence: FR)
  Receive Date: 20190330
  Receipt Date: 20190330
  Transmission Date: 20190418
  Serious: Yes (Hospitalization)
  Sender: FDA-Public Use
  Company Number: FR-ACCORD-117153

PATIENT
  Age: 90 Year
  Sex: Female
  Weight: 35 kg

DRUGS (1)
  1. FUROSEMIDE. [Suspect]
     Active Substance: FUROSEMIDE
     Indication: HYPOTENSION
     Dosage: ALSO TAKEN 40 MG FROM 01-JAN-2004 TO 10-MAR-2018
     Route: 048
     Dates: start: 20040101, end: 20180101

REACTIONS (2)
  - Orthostatic hypotension [Not Recovered/Not Resolved]
  - Fall [Unknown]

NARRATIVE: CASE EVENT DATE: 20170101
